FAERS Safety Report 14917179 (Version 3)
Quarter: 2018Q4

REPORT INFORMATION
  Report Type: Spontaneous
  Country: GR (occurrence: GR)
  Receive Date: 20180521
  Receipt Date: 20181119
  Transmission Date: 20190204
  Serious: Yes (Other)
  Sender: FDA-Public Use
  Company Number: GR-ABBVIE-18S-066-2361288-00

PATIENT
  Age: 75 Year
  Sex: Male

DRUGS (2)
  1. TREBON [Concomitant]
     Indication: PRODUCT USED FOR UNKNOWN INDICATION
  2. KLARICID [Suspect]
     Active Substance: CLARITHROMYCIN
     Indication: PRODUCT USED FOR UNKNOWN INDICATION
     Dosage: 500 MG, BID
     Route: 048
     Dates: start: 20180509

REACTIONS (1)
  - Hypoacusis [Recovered/Resolved]
